FAERS Safety Report 10135253 (Version 1)
Quarter: 2014Q2

REPORT INFORMATION
  Report Type: Spontaneous
  Country: NO (occurrence: NO)
  Receive Date: 20140428
  Receipt Date: 20140428
  Transmission Date: 20141212
  Serious: Yes (Hospitalization)
  Sender: FDA-Public Use
  Company Number: NO-ACTAVIS-2014-08300

PATIENT
  Age: 64 Year
  Sex: Female

DRUGS (2)
  1. EPIRUBICIN (UNKNOWN) [Suspect]
     Indication: BREAST CANCER
     Dosage: 60 MG/M2, 1/TWO WEEKS (ADR AFTER 3 DOSES)
     Route: 042
     Dates: start: 20130311, end: 20130409
  2. NEULASTA [Concomitant]
     Indication: NEUTROPENIA
     Dosage: 6 MG, 1/TWO WEEKS
     Route: 058
     Dates: start: 20130312, end: 20130410

REACTIONS (2)
  - Pneumonitis [Recovered/Resolved]
  - Pneumocystis jirovecii infection [Recovered/Resolved]
